FAERS Safety Report 20889096 (Version 1)
Quarter: 2022Q2

REPORT INFORMATION
  Report Type: Spontaneous
  Country: US (occurrence: None)
  Receive Date: 20220530
  Receipt Date: 20220530
  Transmission Date: 20220720
  Serious: Yes (Other)
  Sender: FDA-Public Use
  Company Number: US-SUPERNUS Pharmaceuticals, Inc.-SUP202205-001340

PATIENT
  Age: 9 Year
  Sex: Male
  Weight: 35.83 kg

DRUGS (12)
  1. QELBREE [Suspect]
     Active Substance: VILOXAZINE HYDROCHLORIDE
     Indication: Attention deficit hyperactivity disorder
     Dates: start: 2022
  2. LEXAPRO [Concomitant]
     Active Substance: ESCITALOPRAM OXALATE
  3. HYDROXYZINE [Concomitant]
     Active Substance: HYDROXYZINE HYDROCHLORIDE
  4. TRILEPTAL [Concomitant]
     Active Substance: OXCARBAZEPINE
  5. TRILEPTAL [Concomitant]
     Active Substance: OXCARBAZEPINE
  6. ATIVAN [Concomitant]
     Active Substance: LORAZEPAM
     Indication: Anxiety
  7. ATIVAN [Concomitant]
     Active Substance: LORAZEPAM
     Dosage: NOT PROVIDED
  8. TENEX [Concomitant]
     Active Substance: GUANFACINE HYDROCHLORIDE
  9. PREDNISONE [Concomitant]
     Active Substance: PREDNISONE
     Indication: Asthma
     Dosage: 5MG
  10. SINGULAIR [Concomitant]
     Active Substance: MONTELUKAST SODIUM
     Indication: Asthma
     Dosage: NOT PROVIDED
  11. RISPERDAL [Interacting]
     Active Substance: RISPERIDONE
  12. RISPERDAL [Interacting]
     Active Substance: RISPERIDONE

REACTIONS (5)
  - Fall [Unknown]
  - Lower limb fracture [Unknown]
  - Drug interaction [Unknown]
  - Ligament sprain [Unknown]
  - Dyskinesia [Unknown]
